FAERS Safety Report 15188879 (Version 1)
Quarter: 2018Q3

REPORT INFORMATION
  Report Type: Spontaneous
  Country: US (occurrence: US)
  Receive Date: 20180724
  Receipt Date: 20180724
  Transmission Date: 20181010
  Serious: No
  Sender: FDA-Public Use
  Company Number: US-PFIZER INC-2018296021

PATIENT
  Age: 37 Year
  Sex: Female

DRUGS (4)
  1. ICLUSIG [Concomitant]
     Active Substance: PONATINIB
     Dosage: 15 MG, UNK
  2. CEFUROXIME. [Concomitant]
     Active Substance: CEFUROXIME
     Dosage: 500 MG, UNK
  3. BOSULIF [Suspect]
     Active Substance: BOSUTINIB MONOHYDRATE
     Indication: CHRONIC MYELOID LEUKAEMIA
     Dosage: 500 MG, DAILY
     Route: 048
     Dates: start: 201806, end: 2018
  4. TRIAMTERENE AND HYDROCHLOROTHIAZIDE [Concomitant]
     Active Substance: HYDROCHLOROTHIAZIDE\TRIAMTERENE
     Dosage: UNK (TRIAMTERENE: 37.5; HYDROCHLOROTHIAZIDE: 25)

REACTIONS (2)
  - Rash [Unknown]
  - Malaise [Unknown]

NARRATIVE: CASE EVENT DATE: 2018
